FAERS Safety Report 16687378 (Version 1)
Quarter: 2019Q3

REPORT INFORMATION
  Report Type: Spontaneous
  Country: US (occurrence: US)
  Receive Date: 20190809
  Receipt Date: 20190809
  Transmission Date: 20191004
  Serious: No
  Sender: FDA-Public Use
  Company Number: US-TARO-2019TAR00486

PATIENT
  Age: 67 Year
  Sex: Male
  Weight: 90.7 kg

DRUGS (5)
  1. WARFARIN SODIUM TABLETS USP 5MG [Suspect]
     Active Substance: WARFARIN SODIUM
     Indication: THROMBOSIS PROPHYLAXIS
     Dosage: 5 MG, 4X/WEEK
     Route: 048
     Dates: end: 2019
  2. WARFARIN SODIUM TABLETS USP 5MG [Suspect]
     Active Substance: WARFARIN SODIUM
     Dosage: 5 MG, 4X/WEEK
     Route: 048
     Dates: start: 2019
  3. WARFARIN SODIUM TABLETS USP 5MG [Suspect]
     Active Substance: WARFARIN SODIUM
     Dosage: 7.5 MG, 3X/WEEK
     Route: 048
     Dates: end: 2019
  4. WARFARIN SODIUM TABLETS USP 5MG [Suspect]
     Active Substance: WARFARIN SODIUM
     Dosage: 5 MG, 1X/DAY
     Dates: start: 2019, end: 2019
  5. WARFARIN SODIUM TABLETS USP 5MG [Suspect]
     Active Substance: WARFARIN SODIUM
     Dosage: 7.5 MG, 3X/WEEK
     Route: 048
     Dates: start: 2019

REACTIONS (1)
  - International normalised ratio fluctuation [Recovered/Resolved]

NARRATIVE: CASE EVENT DATE: 201905
